FAERS Safety Report 11449258 (Version 1)
Quarter: 2015Q3

REPORT INFORMATION
  Report Type: Report from Study
  Country: US (occurrence: US)
  Receive Date: 20150902
  Receipt Date: 20150902
  Transmission Date: 20151125
  Serious: Yes (Other)
  Sender: FDA-Public Use
  Company Number: US-BAUSCH-BL-2015-020322

PATIENT
  Sex: Female

DRUGS (2)
  1. PRALATREXATE [Suspect]
     Active Substance: PRALATREXATE
     Indication: NEOPLASM
     Route: 065
  2. 5 FLUOROURACIL [Suspect]
     Active Substance: FLUOROURACIL
     Indication: NEOPLASM
     Dosage: 3000 MG/M2/48 HOURS EVERY 2 WEEKS
     Route: 065

REACTIONS (2)
  - Anaemia [Unknown]
  - Pulmonary embolism [Unknown]
